FAERS Safety Report 19882777 (Version 2)
Quarter: 2022Q1

REPORT INFORMATION
  Report Type: Spontaneous
  Country: AU (occurrence: AU)
  Receive Date: 20210924
  Receipt Date: 20220318
  Transmission Date: 20220423
  Serious: Yes (Other)
  Sender: FDA-Public Use
  Company Number: AU-ALLERGAN-2132904US

PATIENT
  Sex: Female

DRUGS (5)
  1. UNSPECIFIED INGREDIENT [Suspect]
     Active Substance: UNSPECIFIED INGREDIENT
     Indication: Product used for unknown indication
     Dosage: UNK
  2. DOXORUBICIN HYDROCHLORIDE [Suspect]
     Active Substance: DOXORUBICIN HYDROCHLORIDE
     Indication: Product used for unknown indication
     Dosage: UNK
  3. RITUXIMAB [Suspect]
     Active Substance: RITUXIMAB
     Indication: Product used for unknown indication
     Dosage: UNK
  4. ETOPOSIDE [Suspect]
     Active Substance: ETOPOSIDE
     Indication: Product used for unknown indication
     Dosage: UNK
  5. METHOTREXATE [Suspect]
     Active Substance: METHOTREXATE
     Indication: Product used for unknown indication
     Dosage: UNK
     Dates: start: 2018

REACTIONS (11)
  - Acute kidney injury [Unknown]
  - Diffuse large B-cell lymphoma [Unknown]
  - Nephropathy toxic [Unknown]
  - Blood lactate dehydrogenase increased [Unknown]
  - Bone lesion [Unknown]
  - Catheter site cellulitis [Unknown]
  - Fatigue [Unknown]
  - Hypercalcaemia [Unknown]
  - Lymphadenopathy [Unknown]
  - Renal impairment [Unknown]
  - Splenomegaly [Unknown]

NARRATIVE: CASE EVENT DATE: 20180901
